FAERS Safety Report 5165206-5 (Version None)
Quarter: 2006Q4

REPORT INFORMATION
  Report Type: 
  Country: None (occurrence: None)
  Receive Date: 20061124
  Receipt Date: 20061114
  Transmission Date: 20070319
  Serious: Yes (Other)
  Sender: FDA-Public Use
  Company Number: 2006135876

PATIENT
  Age: 64 Year
  Sex: Male

DRUGS (1)
  1. ZYVOX [Suspect]
     Dosage: INTRAVENOUS
     Route: 042
     Dates: end: 20061101

REACTIONS (3)
  - OPTIC NERVE DISORDER [None]
  - RASH [None]
  - VISUAL FIELD DEFECT [None]
